FAERS Safety Report 4607720-4 (Version None)
Quarter: 2005Q1

REPORT INFORMATION
  Report Type: 
  Country: None (occurrence: None)
  Receive Date: 20050309
  Receipt Date: 20050222
  Transmission Date: 20050727
  Serious: Yes (Hospitalization)
  Sender: FDA-Public Use
  Company Number: S04-FRA-08269-01

PATIENT
  Age: 89 Year
  Sex: Female

DRUGS (5)
  1. CITALOPRAM HYDROBROMIDE [Suspect]
     Dosage: 1 UNK QD PO
     Route: 048
     Dates: start: 20030121, end: 20030218
  2. LASILIX (FUROSEMIDE) [Suspect]
     Indication: CARDIAC FAILURE
     Dosage: 40 MG QD PO
     Route: 048
     Dates: start: 20030121, end: 20030218
  3. AUGMENTIN '125' [Suspect]
     Indication: BRONCHITIS
     Dates: start: 20030210, end: 20030218
  4. ROCEPHIN [Suspect]
     Indication: BRONCHITIS
     Dosage: 2 G QD IM
     Route: 030
     Dates: start: 20030210, end: 20030218
  5. DILTIAZEM HYDROCHLORIDE [Suspect]
     Indication: ESSENTIAL HYPERTENSION
     Dosage: 200 MG QD PO
     Dates: start: 20030121, end: 20030218

REACTIONS (4)
  - GINGIVAL BLEEDING [None]
  - HAEMATOMA [None]
  - IDIOPATHIC THROMBOCYTOPENIC PURPURA [None]
  - MOUTH HAEMORRHAGE [None]
